FAERS Safety Report 6999220-1 (Version None)
Quarter: 2010Q3

REPORT INFORMATION
  Report Type: 
  Country: None (occurrence: None)
  Receive Date: 20100920
  Receipt Date: 20100105
  Transmission Date: 20110219
  Serious: Yes (Other)
  Sender: FDA-Public Use
  Company Number: US-ASTRAZENECA-2008UW07396

PATIENT
  Age: 16865 Day
  Sex: Female

DRUGS (5)
  1. SEROQUEL [Suspect]
     Dosage: 25 MG TO 200 MG
     Route: 048
     Dates: start: 20051228
  2. CLONAZEPAM [Concomitant]
     Dates: start: 20051228
  3. DEPAKOTE ENTERIC COATED [Concomitant]
     Dates: start: 20051228
  4. LORAZEPAM [Concomitant]
     Dates: start: 20060101
  5. EFFEXOR XR [Concomitant]
     Dates: start: 20060101

REACTIONS (2)
  - DIABETES MELLITUS [None]
  - DIABETIC COMA [None]
